FAERS Safety Report 9322375 (Version 2)
Quarter: 2013Q2

REPORT INFORMATION
  Report Type: Spontaneous
  Country: CZ (occurrence: CZ)
  Receive Date: 20130531
  Receipt Date: 20130605
  Transmission Date: 20140414
  Serious: Yes (Other)
  Sender: FDA-Public Use
  Company Number: CZ-AMGEN-CZESP2013038204

PATIENT
  Age: 45 Year
  Sex: Female

DRUGS (14)
  1. NEULASTA [Suspect]
     Indication: BREAST CANCER METASTATIC
     Dosage: 6 MG, PER CHEMO REGIM
     Route: 058
  2. NEULASTA [Suspect]
     Indication: NEUTROPENIA
  3. FILGRASTIM [Suspect]
     Indication: BREAST CANCER METASTATIC
     Dosage: 48 MU, QD
  4. FILGRASTIM [Suspect]
     Indication: NEUTROPENIA
  5. CYCLOPHOSPHAMIDE [Concomitant]
     Dosage: 1020 MG, UNK
  6. MYOCET [Concomitant]
     Dosage: 102 MG, UNK
  7. DOCETAXEL [Concomitant]
     Dosage: UNK
  8. EPIRUBICIN [Concomitant]
     Dosage: UNK
  9. MITOMYCIN [Concomitant]
     Dosage: UNK
  10. MITOXANTRONE [Concomitant]
     Dosage: UNK
  11. METHOTREXATE [Concomitant]
     Dosage: UNK
  12. CYCLOPHOSPHAMID W/DOXORUBICIN [Concomitant]
     Dosage: UNK
  13. VINORELBINE [Concomitant]
     Dosage: UNK
  14. CAPECITABINE [Concomitant]
     Dosage: UNK

REACTIONS (2)
  - Febrile neutropenia [Unknown]
  - Drug ineffective [Unknown]
